FAERS Safety Report 18137034 (Version 1)
Quarter: 2020Q3

REPORT INFORMATION
  Report Type: Spontaneous
  Country: DE (occurrence: DE)
  Receive Date: 20200812
  Receipt Date: 20200812
  Transmission Date: 20201103
  Serious: Yes (Hospitalization)
  Sender: FDA-Public Use
  Company Number: DE-TEVA-2020-DE-1812247

PATIENT
  Age: 3 Year
  Sex: Female
  Weight: 18 kg

DRUGS (1)
  1. ARIPIPRAZOL 5MG [Suspect]
     Active Substance: ARIPIPRAZOLE
     Indication: ACCIDENTAL EXPOSURE TO PRODUCT BY CHILD
     Dosage: DAILY DOSE: 2 DF DOSAGE FORM EVERY DAYS
     Route: 048
     Dates: start: 20190428

REACTIONS (5)
  - Vomiting [Unknown]
  - Accidental exposure to product by child [Unknown]
  - Fatigue [Unknown]
  - Nausea [Unknown]
  - Product storage error [Unknown]

NARRATIVE: CASE EVENT DATE: 20190428
